FAERS Safety Report 9478777 (Version 1)
Quarter: 2013Q3

REPORT INFORMATION
  Report Type: Spontaneous
  Country: FR (occurrence: FR)
  Receive Date: 20130827
  Receipt Date: 20130827
  Transmission Date: 20140515
  Serious: Yes (Disabling)
  Sender: FDA-Public Use
  Company Number: FR-ROCHE-1266619

PATIENT
  Age: 61 Year
  Sex: Male

DRUGS (5)
  1. MABTHERA [Suspect]
     Indication: PEMPHIGUS
     Route: 042
     Dates: start: 20130219
  2. MABTHERA [Suspect]
     Route: 042
     Dates: start: 20130305
  3. CORTANCYL [Suspect]
     Indication: PEMPHIGUS
     Route: 048
     Dates: start: 2003
  4. AMLODIPIN [Concomitant]
     Indication: HYPERTENSION
  5. OLMESARTAN [Concomitant]
     Indication: HYPERTENSION

REACTIONS (1)
  - Pulmonary embolism [Recovered/Resolved with Sequelae]
